FAERS Safety Report 10460281 (Version 2)
Quarter: 2014Q4

REPORT INFORMATION
  Report Type: Spontaneous
  Country: US (occurrence: US)
  Receive Date: 20140917
  Receipt Date: 20141016
  Transmission Date: 20150528
  Serious: Yes (Other)
  Sender: FDA-Public Use
  Company Number: US-PFIZER INC-2014254705

PATIENT
  Age: 59 Year
  Sex: Female
  Weight: 88 kg

DRUGS (7)
  1. LIPITOR [Suspect]
     Active Substance: ATORVASTATIN CALCIUM
     Indication: BLOOD CHOLESTEROL INCREASED
     Dosage: 10 MG, 1XDAY
     Route: 048
     Dates: start: 200304, end: 200306
  2. LIPITOR [Suspect]
     Active Substance: ATORVASTATIN CALCIUM
     Dosage: 10 MG, DAILY
     Route: 048
     Dates: start: 201009, end: 201109
  3. BABY ASPIRIN [Concomitant]
     Active Substance: ASPIRIN
     Indication: CARDIOVASCULAR EVENT PROPHYLAXIS
  4. LIPITOR [Suspect]
     Active Substance: ATORVASTATIN CALCIUM
     Dosage: 5 MG, DAILY HALF A TABLET OF 10 MG
     Route: 048
     Dates: start: 200903, end: 200909
  5. LIPITOR [Suspect]
     Active Substance: ATORVASTATIN CALCIUM
     Dosage: 5 MG, HALF A TABLET OF 10 MG FOUR DAYS A WEEK
     Route: 048
     Dates: start: 200603, end: 200810
  6. BABY ASPIRIN [Concomitant]
     Active Substance: ASPIRIN
     Indication: BLOOD DISORDER
     Dosage: 81 MG, ONE TABLET DAILY
     Dates: start: 2001
  7. SUPER B COMPLEX WITH VITAMIN C [Concomitant]
     Indication: HOT FLUSH
     Dosage: 1 DF, DAILY
     Dates: start: 1992

REACTIONS (2)
  - Hyperglycaemia [Not Recovered/Not Resolved]
  - Type 2 diabetes mellitus [Not Recovered/Not Resolved]

NARRATIVE: CASE EVENT DATE: 20081023
